FAERS Safety Report 7520511-X (Version None)
Quarter: 2011Q2

REPORT INFORMATION
  Report Type: 
  Country: None (occurrence: None)
  Receive Date: 20110602
  Receipt Date: 20110519
  Transmission Date: 20111010
  Serious: Yes (Other)
  Sender: FDA-Public Use
  Company Number: VE-ELI_LILLY_AND_COMPANY-VE201103002424

PATIENT
  Age: 22 Year
  Sex: Female

DRUGS (4)
  1. ZYPREXA [Suspect]
     Indication: MAJOR DEPRESSION
     Dosage: 10 MG, DAILY (1/D)
     Dates: start: 20100101
  2. ZYPREXA [Suspect]
     Dosage: 10 MG, QD
  3. ZYPREXA [Suspect]
     Dosage: 20 MG, UNK
  4. CYMBALTA [Suspect]
     Dates: start: 20100101, end: 20110217

REACTIONS (2)
  - ABDOMINAL PAIN UPPER [None]
  - OCULOGYRIC CRISIS [None]
